FAERS Safety Report 6049149-0 (Version None)
Quarter: 2009Q1

REPORT INFORMATION
  Report Type: 
  Country: None (occurrence: None)
  Receive Date: 20090123
  Receipt Date: 20090112
  Transmission Date: 20090719
  Serious: Yes (Hospitalization, Other)
  Sender: FDA-Public Use
  Company Number: US-ELI_LILLY_AND_COMPANY-US200810005412

PATIENT
  Sex: Female

DRUGS (10)
  1. FORTEO [Suspect]
     Indication: OSTEOPOROSIS
     Dosage: UNK, UNK
  2. HUMIRA [Concomitant]
     Indication: ARTHRITIS
  3. TRIMETHOBENZAMIDE [Concomitant]
  4. DILAUDID [Concomitant]
  5. NITREX [Concomitant]
  6. PRILOSEC [Concomitant]
  7. CODEINE SUL TAB [Concomitant]
  8. MICAFUNGIN [Concomitant]
  9. VOLTAREN /SCH/ [Concomitant]
  10. ESTRADIOL [Concomitant]

REACTIONS (2)
  - CROHN'S DISEASE [None]
  - PELVIC ABSCESS [None]
